FAERS Safety Report 18270384 (Version 2)
Quarter: 2020Q3

REPORT INFORMATION
  Report Type: Report from Study
  Country: FR (occurrence: FR)
  Receive Date: 20200915
  Receipt Date: 20200928
  Transmission Date: 20201103
  Serious: Yes (Hospitalization, Other)
  Sender: FDA-Public Use
  Company Number: FR-MYLANLABS-2020M1077900

PATIENT
  Age: 76 Year
  Sex: Male
  Weight: 59 kg

DRUGS (8)
  1. PREDNISONE. [Suspect]
     Active Substance: PREDNISONE
     Dosage: 10 MG, QD
     Route: 048
     Dates: start: 20200807
  2. LENOGRASTIM [Suspect]
     Active Substance: LENOGRASTIM
     Indication: HORMONE-REFRACTORY PROSTATE CANCER
     Dosage: WILL INJECT FROM DAY 3?7 (5 DAYS) AFTER EVERY ADMINISTRATION OF CABAZITAXEL
     Route: 065
     Dates: start: 20200718
  3. G?CSF [Concomitant]
     Active Substance: GRANULOCYTE COLONY-STIMULATING FACTOR NOS
     Dosage: UNK
     Route: 058
     Dates: start: 20200808, end: 20200812
  4. CABAZITAXEL [Suspect]
     Active Substance: CABAZITAXEL
     Indication: HORMONE-REFRACTORY PROSTATE CANCER
     Dosage: 25 MG/M2, Q3W
     Route: 042
     Dates: start: 20200806, end: 20200806
  5. PREDNISONE. [Concomitant]
     Active Substance: PREDNISONE
     Indication: PROPHYLAXIS
     Dosage: UNK
     Route: 048
     Dates: start: 20200807
  6. PREDNISONE. [Suspect]
     Active Substance: PREDNISONE
     Indication: HORMONE-REFRACTORY PROSTATE CANCER
     Dosage: 10 MG, QD
     Route: 048
  7. CABAZITAXEL [Suspect]
     Active Substance: CABAZITAXEL
     Dosage: 25 MG/M2, Q3W
     Route: 042
  8. G?CSF [Concomitant]
     Active Substance: GRANULOCYTE COLONY-STIMULATING FACTOR NOS
     Indication: PROPHYLAXIS
     Dosage: UNK
     Route: 058
     Dates: start: 20200718, end: 20200722

REACTIONS (2)
  - Neutropenia [Not Recovered/Not Resolved]
  - Febrile neutropenia [Recovered/Resolved]

NARRATIVE: CASE EVENT DATE: 20200813
